FAERS Safety Report 14150787 (Version 3)
Quarter: 2018Q1

REPORT INFORMATION
  Report Type: Report from Study
  Country: CO (occurrence: CO)
  Receive Date: 20171102
  Receipt Date: 20180121
  Transmission Date: 20180508
  Serious: Yes (Hospitalization, Other)
  Sender: FDA-Public Use
  Company Number: CO-AMGEN-COLSP2017163132

PATIENT
  Age: 69 Year
  Sex: Female
  Weight: 51.97 kg

DRUGS (1)
  1. PROLIA [Suspect]
     Active Substance: DENOSUMAB
     Indication: OSTEOPOROSIS POSTMENOPAUSAL
     Dosage: 60 MG, Q6MO
     Route: 058
     Dates: start: 20170904

REACTIONS (6)
  - Pain in extremity [Unknown]
  - Contusion [Unknown]
  - Systemic lupus erythematosus [Not Recovered/Not Resolved]
  - Haemophilia [Not Recovered/Not Resolved]
  - Factor XI deficiency [Unknown]
  - Induration [Unknown]

NARRATIVE: CASE EVENT DATE: 20170909
